FAERS Safety Report 9594089 (Version 1)
Quarter: 2013Q3

REPORT INFORMATION
  Report Type: Spontaneous
  Country: US (occurrence: None)
  Receive Date: 20130930
  Receipt Date: 20130930
  Transmission Date: 20140515
  Serious: No
  Sender: FDA-Public Use
  Company Number: 1000047675

PATIENT
  Age: 66 Year
  Sex: Male

DRUGS (7)
  1. LINZESS (LINACLOTIDE) (290 MICROGRAM, TABLETS) [Suspect]
     Indication: IRRITABLE BOWEL SYNDROME
     Dosage: 290MCG (290 MCG, 1 IN 1 D), ORAL
     Route: 048
     Dates: start: 20130803
  2. LINZESS (LINACLOTIDE) (290 MICROGRAM, TABLETS) [Suspect]
     Indication: CONSTIPATION
     Dosage: 290MCG (290 MCG, 1 IN 1 D), ORAL
     Route: 048
     Dates: start: 20130803
  3. METAMUCIL (PSYLLIUM FIBER) (PSYLLIUM FIBER) [Concomitant]
  4. DICYCLOMINE HCL (DICYCLOVERINE HYDROCHLORIDE) (DICYCLOVERINE HYDROCHLORIDE) [Concomitant]
  5. BUPROPION (BUPROPION) (BUPROPION) [Concomitant]
  6. SERTRALINE (SERTRALINE) (SERTRALINE) [Concomitant]
  7. ALPRAZOLAM (ALPRAZOLAM) (ALPRAZOLAM) [Concomitant]

REACTIONS (1)
  - Diarrhoea [None]
